FAERS Safety Report 9566815 (Version 5)
Quarter: 2014Q2

REPORT INFORMATION
  Report Type: Spontaneous
  Country: US (occurrence: US)
  Receive Date: 20130930
  Receipt Date: 20140410
  Transmission Date: 20141212
  Serious: Yes (Life-Threatening, Hospitalization)
  Sender: FDA-Public Use
  Company Number: US-TMC-CABO-13003351

PATIENT
  Age: 61 Year
  Sex: Male

DRUGS (10)
  1. COMETRIQ [Suspect]
     Indication: THYROID CANCER
     Dosage: 140 MG, QD
     Route: 048
     Dates: start: 20130901, end: 20130917
  2. COMETRIQ [Suspect]
     Dosage: 120 MG, QD
     Route: 048
     Dates: start: 20140103
  3. COMETRIQ [Suspect]
     Dosage: 80 MG, UNK
  4. ACETAMINOPHEN [Concomitant]
  5. ASPIRIN [Concomitant]
  6. METOPROLOL [Concomitant]
  7. AMLODIPINE BESYLATE [Concomitant]
  8. LEVOTHYROXINE [Concomitant]
  9. MULTIVITAMIN [Concomitant]
  10. TYLENOL [Concomitant]

REACTIONS (4)
  - Incision site infection [Recovering/Resolving]
  - Chylothorax [Recovering/Resolving]
  - Lung disorder [Recovering/Resolving]
  - Staphylococcal infection [Recovering/Resolving]
